FAERS Safety Report 10166740 (Version 1)
Quarter: 2014Q2

REPORT INFORMATION
  Report Type: Spontaneous
  Country: US (occurrence: None)
  Receive Date: 20140509
  Receipt Date: 20140509
  Transmission Date: 20141212
  Serious: Yes (Hospitalization)
  Sender: FDA-Public Use
  Company Number: None

PATIENT
  Age: 13 Year
  Sex: Female
  Weight: 53.9 kg

DRUGS (6)
  1. PREDNISONE [Suspect]
     Dates: end: 20140503
  2. DAUNORUBICIN [Suspect]
     Dates: end: 20140501
  3. VINCRISTINE SULFATE [Suspect]
     Dates: end: 20140501
  4. CYTARABINE [Suspect]
     Dates: end: 20140410
  5. METHOTREXATE [Suspect]
     Dates: end: 20140417
  6. ONCASPAR [Suspect]
     Dates: end: 20140413

REACTIONS (4)
  - Duodenal ulcer perforation [None]
  - Apnoea [None]
  - Convulsion [None]
  - Hypoxia [None]
